FAERS Safety Report 23378961 (Version 4)
Quarter: 2024Q1

REPORT INFORMATION
  Report Type: Spontaneous
  Country: BR (occurrence: BR)
  Receive Date: 20240108
  Receipt Date: 20240202
  Transmission Date: 20240409
  Serious: Yes (Other)
  Sender: FDA-Public Use
  Company Number: BR-JNJFOC-20231239390

PATIENT
  Age: 48 Year
  Sex: Female

DRUGS (3)
  1. SIMPONI [Suspect]
     Active Substance: GOLIMUMAB
     Indication: Ankylosing spondylitis
     Route: 058
     Dates: start: 20230901
  2. SIMPONI [Suspect]
     Active Substance: GOLIMUMAB
  3. SIMPONI [Suspect]
     Active Substance: GOLIMUMAB
     Indication: Ankylosing spondylitis
     Dosage: 50.00 MG / 0.50 ML
     Route: 058

REACTIONS (9)
  - Ankylosing spondylitis [Unknown]
  - Device deployment issue [Unknown]
  - Product dose omission issue [Unknown]
  - Syringe issue [Unknown]
  - Drug ineffective [Unknown]
  - Pain [Unknown]
  - Underdose [Unknown]
  - Accidental exposure to product [Unknown]
  - Malaise [Unknown]
